FAERS Safety Report 4401974-5 (Version None)
Quarter: 2004Q3

REPORT INFORMATION
  Report Type: 
  Country: None (occurrence: None)
  Receive Date: 20040720
  Receipt Date: 20040706
  Transmission Date: 20050211
  Serious: Yes (Death, Other)
  Sender: FDA-Public Use
  Company Number: 200412308JP

PATIENT
  Sex: 0

DRUGS (6)
  1. TAXOTERE [Suspect]
     Indication: NON-SMALL CELL LUNG CANCER
     Route: 041
  2. TAXOTERE [Suspect]
     Indication: SQUAMOUS CELL CARCINOMA
     Route: 041
  3. RANDA [Suspect]
     Indication: NON-SMALL CELL LUNG CANCER
     Route: 041
  4. RANDA [Suspect]
     Indication: SQUAMOUS CELL CARCINOMA
     Route: 041
  5. TOPOTECIN [Suspect]
     Indication: NON-SMALL CELL LUNG CANCER
     Route: 041
  6. TOPOTECIN [Suspect]
     Indication: SQUAMOUS CELL CARCINOMA
     Route: 041

REACTIONS (16)
  - ANXIETY [None]
  - ASCITES [None]
  - CACHEXIA [None]
  - DRUG EFFECT DECREASED [None]
  - GASTROINTESTINAL OEDEMA [None]
  - ILEUS [None]
  - INTESTINAL DILATATION [None]
  - INTESTINAL OBSTRUCTION [None]
  - INTUSSUSCEPTION [None]
  - LYMPHADENOPATHY [None]
  - MALIGNANT NEOPLASM PROGRESSION [None]
  - METASTASES TO SMALL INTESTINE [None]
  - MULTI-ORGAN FAILURE [None]
  - PAIN [None]
  - PULMONARY INFARCTION [None]
  - SENSATION OF PRESSURE [None]
